FAERS Safety Report 16255854 (Version 1)
Quarter: 2019Q2

REPORT INFORMATION
  Report Type: Spontaneous
  Country: US (occurrence: US)
  Receive Date: 20190430
  Receipt Date: 20190430
  Transmission Date: 20190711
  Serious: Yes (Other)
  Sender: FDA-Public Use
  Company Number: US-PFIZER INC-2019176019

PATIENT
  Age: 82 Year
  Sex: Male
  Weight: 74.84 kg

DRUGS (3)
  1. ASPIRIN [ACETYLSALICYLIC ACID] [Concomitant]
     Active Substance: ASPIRIN
     Indication: CEREBROVASCULAR ACCIDENT
     Dosage: UNK UNK, DAILY (1/2 OF FULL STRENGTH ASPIRIN A DAY BY MOUTH)
     Route: 048
  2. ADVIL [Suspect]
     Active Substance: IBUPROFEN
     Indication: PAIN IN EXTREMITY
     Dosage: 200 MG, DAILY (1 TABLET PER DAY)
  3. ADVIL [Suspect]
     Active Substance: IBUPROFEN
     Indication: NASOPHARYNGITIS

REACTIONS (3)
  - Foot deformity [Not Recovered/Not Resolved]
  - Cerebrovascular accident [Unknown]
  - Pain [Unknown]

NARRATIVE: CASE EVENT DATE: 2018
